FAERS Safety Report 6945840-X (Version None)
Quarter: 2010Q3

REPORT INFORMATION
  Report Type: 
  Country: None (occurrence: None)
  Receive Date: 20100827
  Receipt Date: 20100817
  Transmission Date: 20110219
  Serious: Yes (Other)
  Sender: FDA-Public Use
  Company Number: US-JNJCH-2010012253

PATIENT
  Age: 7 Year
  Sex: Female

DRUGS (4)
  1. CHILDREN'S BENADRYL ALLERGY [Suspect]
     Indication: RASH
     Dosage: TEXT:2 1/2 TEASPOONSFUL FIVE TIMES DAILY
     Route: 048
  2. CALADRYL [Suspect]
     Indication: RASH
     Dosage: TEXT:UNSPECIFIED
     Route: 061
  3. HYDROCORTISONE [Suspect]
     Indication: RASH
     Dosage: TEXT:UNSPECIFIED
     Route: 065
  4. RANITIDINE [Suspect]
     Indication: RASH
     Route: 065

REACTIONS (8)
  - CAPILLARY FRAGILITY [None]
  - MYALGIA [None]
  - OVERDOSE [None]
  - PAIN [None]
  - PRODUCT QUALITY ISSUE [None]
  - PRURITUS [None]
  - THERAPEUTIC PRODUCT INEFFECTIVE FOR UNAPPROVED INDICATION [None]
  - WRONG DRUG ADMINISTERED [None]
